FAERS Safety Report 8389867-2 (Version None)
Quarter: 2012Q2

REPORT INFORMATION
  Report Type: 
  Country: None (occurrence: None)
  Receive Date: 20120521
  Receipt Date: 20120515
  Transmission Date: 20120825
  Serious: Yes (Hospitalization)
  Sender: FDA-Public Use
  Company Number: DSA_56104_2012

PATIENT
  Sex: Female

DRUGS (3)
  1. XENAZINE [Suspect]
     Indication: HUNTINGTON'S DISEASE
     Dosage: 12.5; 25 MG, TID, ORAL
     Route: 048
     Dates: start: 20110301, end: 20120301
  2. XENAZINE [Suspect]
     Indication: HUNTINGTON'S DISEASE
     Dosage: 12.5; 25 MG, TID, ORAL
     Route: 048
     Dates: start: 20120101
  3. XENAZINE [Suspect]
     Indication: HUNTINGTON'S DISEASE
     Dosage: 12.5; 25 MG, TID, ORAL
     Route: 048
     Dates: start: 20120301, end: 20120101

REACTIONS (2)
  - CRYING [None]
  - MUSCLE SPASMS [None]
